FAERS Safety Report 7593101-0 (Version None)
Quarter: 2011Q3

REPORT INFORMATION
  Report Type: 
  Country: None (occurrence: None)
  Receive Date: 20110706
  Receipt Date: 20110628
  Transmission Date: 20111222
  Serious: Yes (Hospitalization)
  Sender: FDA-Public Use
  Company Number: FR-ROCHE-787371

PATIENT
  Age: 88 Year
  Sex: Female

DRUGS (3)
  1. CALCIUM CARBONATE [Concomitant]
  2. BONIVA [Suspect]
     Route: 065
     Dates: start: 20080101
  3. VITAMIN D [Concomitant]

REACTIONS (1)
  - FEMUR FRACTURE [None]
